FAERS Safety Report 8216567-1 (Version None)
Quarter: 2012Q1

REPORT INFORMATION
  Report Type: 
  Country: None (occurrence: None)
  Receive Date: 20120316
  Receipt Date: 20120314
  Transmission Date: 20120608
  Serious: Yes (Death)
  Sender: FDA-Public Use
  Company Number: PHHY2012GB022162

PATIENT
  Age: 44 Year
  Sex: Female

DRUGS (5)
  1. PEGASYS [Suspect]
     Route: 058
     Dates: start: 20110209
  2. COPEGUS [Suspect]
     Dates: start: 20110209
  3. AMITRIPTYLINE HCL [Suspect]
     Indication: PAIN
     Route: 048
  4. DIAZEPAM [Suspect]
  5. METHADONE HCL [Suspect]
     Indication: DRUG DEPENDENCE

REACTIONS (1)
  - TOXICITY TO VARIOUS AGENTS [None]
